FAERS Safety Report 8308505-8 (Version None)
Quarter: 2012Q2

REPORT INFORMATION
  Report Type: 
  Country: None (occurrence: None)
  Receive Date: 20120424
  Receipt Date: 20120203
  Transmission Date: 20120825
  Serious: No
  Sender: FDA-Public Use
  Company Number: US-BRISTOL-MYERS SQUIBB COMPANY-16389017

PATIENT

DRUGS (3)
  1. CARBOPLATIN [Suspect]
  2. ERBITUX [Suspect]
  3. PACLITAXEL [Suspect]

REACTIONS (1)
  - HYPOMAGNESAEMIA [None]
